FAERS Safety Report 11795412 (Version 1)
Quarter: 2015Q4

REPORT INFORMATION
  Report Type: Spontaneous
  Country: US (occurrence: US)
  Receive Date: 20151202
  Receipt Date: 20151202
  Transmission Date: 20160305
  Serious: No
  Sender: FDA-Public Use
  Company Number: US-SA-2015SA127871

PATIENT
  Age: 63 Year
  Sex: Female
  Weight: 52.61 kg

DRUGS (13)
  1. VITAMIN D [Concomitant]
     Active Substance: CHOLECALCIFEROL
     Dosage: 1000 UNITS AS DIRECTED DOSE:1000 UNIT(S)
     Dates: start: 20150309
  2. SYNTHROID [Concomitant]
     Active Substance: LEVOTHYROXINE SODIUM
     Dates: start: 20150309
  3. CLOBETASOL [Concomitant]
     Active Substance: CLOBETASOL
     Dosage: 1 DOSE AS DIRECTED
     Dates: start: 20150309
  4. CERDELGA [Suspect]
     Active Substance: ELIGLUSTAT
     Indication: GAUCHER^S DISEASE
     Route: 065
     Dates: start: 2015
  5. LIDOCAINE HYDROCHLORIDE/HYDROCORTISONE [Concomitant]
     Dosage: 1 DOSE AS DIRECTED
     Dates: start: 20150309
  6. CLARITIN-D 12 HOUR [Concomitant]
     Active Substance: LORATADINE\PSEUDOEPHEDRINE SULFATE
     Dates: start: 20150309
  7. SUMATRIPTAN. [Concomitant]
     Active Substance: SUMATRIPTAN
     Dosage: 1 DOSE AS DIRECTED
     Dates: start: 20150309
  8. ASMANEX [Concomitant]
     Active Substance: MOMETASONE FUROATE
     Dosage: 1 DOSE AS DIRECTED
     Dates: start: 20150309
  9. CYCLOBENZAPRINE [Concomitant]
     Active Substance: CYCLOBENZAPRINE
     Dates: start: 20150309
  10. CALCIUM [Concomitant]
     Active Substance: CALCIUM
     Dosage: 1 DOSE AS DIRECTED
     Dates: start: 20150309
  11. BACTRIM [Concomitant]
     Active Substance: SULFAMETHOXAZOLE\TRIMETHOPRIM
  12. MINOCYCLINE\MINOCYCLINE HYDROCHLORIDE [Concomitant]
     Active Substance: MINOCYCLINE\MINOCYCLINE HYDROCHLORIDE
     Dates: start: 20150309
  13. MOTRIN [Concomitant]
     Active Substance: IBUPROFEN
     Dosage: AS DIRECTED
     Dates: start: 20150309

REACTIONS (1)
  - Therapy cessation [Unknown]
